FAERS Safety Report 8025779-1 (Version None)
Quarter: 2012Q1

REPORT INFORMATION
  Report Type: 
  Country: None (occurrence: None)
  Receive Date: 20120105
  Receipt Date: 20110822
  Transmission Date: 20120608
  Serious: No
  Sender: FDA-Public Use
  Company Number: US-ABBOTT-11P-163-0849002-00

PATIENT
  Sex: Female
  Weight: 74.91 kg

DRUGS (6)
  1. SYNTHROID [Suspect]
     Route: 048
     Dates: start: 20110820, end: 20110820
  2. MAXZIDE [Concomitant]
     Indication: BLOOD PRESSURE
  3. SYNTHROID [Suspect]
     Dosage: 1/4 TABLET OF 25 MICROGRAM, AS NEEDED
  4. SYNTHROID [Suspect]
     Dates: start: 20110821
  5. MEDROL [Concomitant]
     Indication: ASTHMA
  6. SYNTHROID [Suspect]
     Indication: AUTOIMMUNE THYROIDITIS
     Dates: end: 20110819

REACTIONS (5)
  - ELECTROCARDIOGRAM ABNORMAL [None]
  - INCORRECT DOSE ADMINISTERED [None]
  - PRODUCT QUALITY ISSUE [None]
  - HEART RATE INCREASED [None]
  - HYPERTHYROIDISM [None]
